FAERS Safety Report 4725045-3 (Version None)
Quarter: 2005Q3

REPORT INFORMATION
  Report Type: 
  Country: None (occurrence: None)
  Receive Date: 20050722
  Receipt Date: 20050712
  Transmission Date: 20060218
  Serious: Yes (Hospitalization, Other)
  Sender: FDA-Public Use
  Company Number: 2005102072

PATIENT
  Age: 62 Year
  Sex: Male
  Weight: 118.3888 kg

DRUGS (14)
  1. CELEBREX [Suspect]
     Indication: ARTHRALGIA
     Dosage: 200 MG (200 MG, 1 IN 1 D), ORAL
     Route: 048
     Dates: start: 19980101
  2. MINIPRESS [Suspect]
     Indication: HYPERTENSION
     Dosage: ORAL
     Route: 048
  3. ANTIHYPERTENSIVES (ANTIHYPERTENSIVES) [Suspect]
     Indication: HYPERTENSION
     Dosage: ORAL
     Route: 048
     Dates: start: 20050601, end: 20050601
  4. VERAPAMIL [Concomitant]
  5. ASPIRIN [Concomitant]
  6. PROTONIX [Concomitant]
  7. STOOL SOFTENER (DOCUSA TE SODIUM) [Concomitant]
  8. FUROSEMIDE (FUROSEMIDE) [Concomitant]
  9. POTASSIUM (POTASSIUM) [Concomitant]
  10. IPRATROPIUM BROMIDE [Concomitant]
  11. ALBUTEROL [Concomitant]
  12. COMPAZINE [Concomitant]
  13. ALPRAZOLAM [Concomitant]
  14. GLUCOTROL [Concomitant]

REACTIONS (13)
  - ARTHRALGIA [None]
  - CARDIOMEGALY [None]
  - CHRONIC OBSTRUCTIVE PULMONARY DISEASE [None]
  - EPISTAXIS [None]
  - FAECES DISCOLOURED [None]
  - HAEMOPTYSIS [None]
  - HYPOTENSION [None]
  - OEDEMA PERIPHERAL [None]
  - PAIN [None]
  - POST PROCEDURAL COMPLICATION [None]
  - POSTOPERATIVE INFECTION [None]
  - PULMONARY THROMBOSIS [None]
  - THROMBOSIS [None]
